FAERS Safety Report 24384517 (Version 1)
Quarter: 2024Q4

REPORT INFORMATION
  Report Type: Spontaneous
  Country: HR (occurrence: HR)
  Receive Date: 20241001
  Receipt Date: 20241001
  Transmission Date: 20250115
  Serious: Yes (Other)
  Sender: BRISTOL MYERS SQUIBB
  Company Number: HR-BRISTOL-MYERS SQUIBB COMPANY-2024-153691

PATIENT
  Age: 58 Year
  Sex: Male

DRUGS (6)
  1. OPDIVO [Suspect]
     Active Substance: NIVOLUMAB
     Indication: Clear cell renal cell carcinoma
     Route: 042
     Dates: start: 202302
  2. OPDIVO [Suspect]
     Active Substance: NIVOLUMAB
     Route: 042
  3. OPDIVO [Suspect]
     Active Substance: NIVOLUMAB
     Route: 042
     Dates: end: 20240918
  4. YERVOY [Suspect]
     Active Substance: IPILIMUMAB
     Indication: Clear cell renal cell carcinoma
     Route: 042
     Dates: start: 202302
  5. YERVOY [Suspect]
     Active Substance: IPILIMUMAB
     Route: 042
  6. DENOSUMAB [Concomitant]
     Active Substance: DENOSUMAB
     Indication: Clear cell renal cell carcinoma
     Dates: start: 202302

REACTIONS (11)
  - Hepatic enzyme increased [Recovered/Resolved]
  - Cancer pain [Unknown]
  - Pathological fracture [Unknown]
  - Pulmonary embolism [Unknown]
  - Asthenia [Unknown]
  - Fatigue [Unknown]
  - Cortisol decreased [Unknown]
  - Diarrhoea [Recovered/Resolved]
  - Candida infection [Recovered/Resolved]
  - Clear cell renal cell carcinoma [Unknown]
  - Off label use [Unknown]

NARRATIVE: CASE EVENT DATE: 20230101
